FAERS Safety Report 15311464 (Version 3)
Quarter: 2019Q1

REPORT INFORMATION
  Report Type: Spontaneous
  Country: US (occurrence: US)
  Receive Date: 20180823
  Receipt Date: 20190314
  Transmission Date: 20190417
  Serious: No
  Sender: FDA-Public Use
  Company Number: US-PFIZER INC-2018340145

PATIENT
  Age: 75 Year
  Sex: Female

DRUGS (2)
  1. XELJANZ XR [Suspect]
     Active Substance: TOFACITINIB CITRATE
     Dosage: 11 MG, DAILY
  2. XELJANZ XR [Suspect]
     Active Substance: TOFACITINIB CITRATE
     Dosage: 11 MG, ALTERNATE DAY [1 TABLET EVERY OTHER DAY]

REACTIONS (5)
  - Product use issue [Unknown]
  - Feeling abnormal [Unknown]
  - Lymphocyte count abnormal [Unknown]
  - Pain [Recovered/Resolved]
  - Blood test abnormal [Recovering/Resolving]
